FAERS Safety Report 21885050 (Version 4)
Quarter: 2023Q2

REPORT INFORMATION
  Report Type: Spontaneous
  Country: US (occurrence: US)
  Receive Date: 20230119
  Receipt Date: 20230523
  Transmission Date: 20230722
  Serious: Yes (Hospitalization, Other)
  Sender: FDA-Public Use
  Company Number: US-PFIZER INC-202300026415

PATIENT
  Age: 57 Year
  Sex: Female

DRUGS (16)
  1. XELJANZ XR [Suspect]
     Active Substance: TOFACITINIB CITRATE
     Dosage: 11 MG, 1X/DAY
     Route: 048
  2. XELJANZ XR [Suspect]
     Active Substance: TOFACITINIB CITRATE
     Dosage: 11 MG, 1X/DAY(TAKE 1 TABLET BY MOUTH ONCE DAILY)
     Route: 048
  3. XELJANZ XR [Suspect]
     Active Substance: TOFACITINIB CITRATE
     Dosage: 11 MG, 1X/DAY
     Route: 048
  4. METHOCARBAMOL [Concomitant]
     Active Substance: METHOCARBAMOL
     Dosage: UNK
  5. VITAMIN D NOS [Concomitant]
     Active Substance: VITAMIN D NOS
     Dosage: UNK
  6. ALBUTEROL SULFATE [Concomitant]
     Active Substance: ALBUTEROL SULFATE
     Dosage: UNK
  7. LACTULOSE [Concomitant]
     Active Substance: LACTULOSE
     Dosage: UNK
  8. ZOLMITRIPTAN [Concomitant]
     Active Substance: ZOLMITRIPTAN
     Dosage: UNK
  9. FLONASE [Concomitant]
     Active Substance: FLUTICASONE PROPIONATE
     Dosage: UNK
  10. HYDROCODONE BITARTRATE [Concomitant]
     Active Substance: HYDROCODONE BITARTRATE
     Dosage: UNK
  11. CYMBALTA [Concomitant]
     Active Substance: DULOXETINE HYDROCHLORIDE
     Dosage: UNK
  12. ROPINIROLE HYDROCHLORIDE [Concomitant]
     Active Substance: ROPINIROLE HYDROCHLORIDE
     Dosage: UNK
  13. HYDROXYCHLOROQUINE SULFATE [Concomitant]
     Active Substance: HYDROXYCHLOROQUINE SULFATE
     Dosage: UNK
  14. LYRICA [Concomitant]
     Active Substance: PREGABALIN
     Dosage: UNK
  15. MUCINEX [Concomitant]
     Active Substance: GUAIFENESIN
     Dosage: UNK
  16. AMOXICILLIN [Concomitant]
     Active Substance: AMOXICILLIN
     Dosage: UNK

REACTIONS (14)
  - Pneumonia [Unknown]
  - Pulmonary fibrosis [Unknown]
  - Systemic lupus erythematosus [Unknown]
  - Spondyloarthropathy [Unknown]
  - Nasopharyngitis [Unknown]
  - Sinusitis [Not Recovered/Not Resolved]
  - Dysphonia [Unknown]
  - Rhinorrhoea [Unknown]
  - Wheezing [Unknown]
  - Autoimmune disorder [Unknown]
  - Product dose omission in error [Unknown]
  - Memory impairment [Not Recovered/Not Resolved]
  - Muscle spasms [Unknown]
  - Muscle spasms [Unknown]

NARRATIVE: CASE EVENT DATE: 20221101
